FAERS Safety Report 6494040-9 (Version None)
Quarter: 2009Q4

REPORT INFORMATION
  Report Type: 
  Country: None (occurrence: None)
  Receive Date: 20091214
  Receipt Date: 20081215
  Transmission Date: 20100525
  Serious: No
  Sender: FDA-Public Use
  Company Number: US-BRISTOL-MYERS SQUIBB COMPANY-14443436

PATIENT
  Age: 33 Year
  Sex: Male
  Weight: 91 kg

DRUGS (1)
  1. ABILIFY [Suspect]
     Indication: POST-TRAUMATIC STRESS DISORDER

REACTIONS (2)
  - SOMNOLENCE [None]
  - VISION BLURRED [None]
